FAERS Safety Report 10069710 (Version 2)
Quarter: 2014Q2

REPORT INFORMATION
  Report Type: Spontaneous
  Country: JP (occurrence: JP)
  Receive Date: 20140410
  Receipt Date: 20140410
  Transmission Date: 20141212
  Serious: Yes (Hospitalization)
  Sender: FDA-Public Use
  Company Number: JP-ROCHE-1367849

PATIENT
  Age: 71 Year
  Sex: Male
  Weight: 52 kg

DRUGS (20)
  1. XELODA [Suspect]
     Indication: COLON CANCER METASTATIC
     Dosage: DOSAGE IS UNCERTAIN. ?NINE COOL
     Route: 048
     Dates: start: 201111
  2. XELODA [Suspect]
     Indication: COLON CANCER METASTATIC
     Dosage: DOSAGE IS UNCERTAIN. ?NINE COOL
     Route: 048
     Dates: start: 201207
  3. AVASTIN [Suspect]
     Indication: COLON CANCER METASTATIC
     Dosage: DOSAGE IS UNCERTAIN. ?NINE COOL
     Route: 041
     Dates: start: 201111
  4. AVASTIN [Suspect]
     Indication: COLON CANCER METASTATIC
     Dosage: DOSAGE IS UNCERTAIN. ?19 COOL
     Route: 041
     Dates: start: 201207
  5. AVASTIN [Suspect]
     Indication: COLON CANCER METASTATIC
     Dosage: DOSAGE IS UNCERTAIN.
     Route: 041
     Dates: start: 20140129, end: 20140212
  6. LEVOFOLINATE [Suspect]
     Indication: COLON CANCER METASTATIC
     Dosage: DOSAGE IS UNCERTAIN.
     Route: 041
     Dates: start: 20140129
  7. CAMPTO [Suspect]
     Indication: COLON CANCER METASTATIC
     Dosage: DOSAGE IS UNCERTAIN.
     Route: 041
     Dates: start: 20140129
  8. 5-FU [Suspect]
     Indication: COLON CANCER METASTATIC
     Dosage: DOSAGE IS UNCERTAIN.
     Route: 040
     Dates: start: 20140129
  9. 5-FU [Suspect]
     Indication: COLON CANCER METASTATIC
     Dosage: DOSAGE IS UNCERTAIN.
     Route: 041
     Dates: start: 20140129
  10. ERBITUX [Concomitant]
     Indication: COLON CANCER METASTATIC
     Dosage: DOSAGE IS UNCERTAIN.
     Route: 065
     Dates: start: 20140129
  11. ELPLAT [Concomitant]
     Indication: COLON CANCER METASTATIC
     Dosage: DOSAGE IS UNCERTAIN. ?NINE COOL
     Route: 041
     Dates: start: 201111
  12. DAIKENCHUTO [Concomitant]
     Route: 065
  13. PYDOXAL [Concomitant]
     Route: 065
  14. ROHYPNOL [Concomitant]
     Route: 065
  15. CYMBALTA [Concomitant]
     Route: 048
  16. MAGMITT [Concomitant]
     Route: 048
  17. MEDICON [Concomitant]
     Route: 048
  18. MUCODYNE [Concomitant]
     Route: 048
  19. BIO-THREE [Concomitant]
     Route: 048
  20. IRINOTECAN HYDROCHLORIDE TRIHYDRATE [Concomitant]

REACTIONS (4)
  - Febrile neutropenia [Recovered/Resolved]
  - Pneumonitis [Recovered/Resolved]
  - Pneumonia bacterial [Recovered/Resolved]
  - Neuropathy peripheral [Unknown]
